FAERS Safety Report 8341764 (Version 7)
Quarter: 2012Q4

REPORT INFORMATION
  Report Type: Report from Study
  Country: NO (occurrence: NO)
  Receive Date: 20120118
  Receipt Date: 20120917
  Transmission Date: 20130627
  Serious: Yes (Hospitalization, Disabling)
  Sender: FDA-Public Use
  Company Number: NO-NOVOPROD-342680

PATIENT
  Age: 36 Year
  Sex: Female
  Weight: 121.6 kg

DRUGS (3)
  1. LIRAGLUTIDE FLEXPEN [Suspect]
     Indication: OBESITY
     Dosage: 0.6 mg, qd
     Route: 058
     Dates: start: 20111103
  2. LIRAGLUTIDE FLEXPEN [Suspect]
     Dosage: 1.8 mg, qd
     Route: 058
     Dates: start: 20111117, end: 20111127
  3. LIRAGLUTIDE FLEXPEN [Suspect]
     Dosage: UNK

REACTIONS (1)
  - Intracranial pressure increased [Recovered/Resolved with Sequelae]
